FAERS Safety Report 13031868 (Version 9)
Quarter: 2018Q2

REPORT INFORMATION
  Report Type: Spontaneous
  Country: US (occurrence: US)
  Receive Date: 20161215
  Receipt Date: 20180403
  Transmission Date: 20180711
  Serious: Yes (Hospitalization)
  Sender: FDA-Public Use
  Company Number: US-PFIZER INC-2016571471

PATIENT
  Age: 78 Year
  Sex: Male
  Weight: 89.34 kg

DRUGS (14)
  1. PROSCAR [Concomitant]
     Active Substance: FINASTERIDE
     Dosage: UNK
  2. GLUCOSAMINE + CHONDROITIN [Concomitant]
     Dosage: UNK
  3. SUTENT [Suspect]
     Active Substance: SUNITINIB MALATE
     Dosage: 50 MG, CYCLIC (1 WEEK ON / 1 WEEK OFF)
     Dates: start: 20161201
  4. FENOFIBRATE. [Concomitant]
     Active Substance: FENOFIBRATE
     Indication: BLOOD TRIGLYCERIDES INCREASED
     Dosage: UNK
  5. HYDRALAZINE [Concomitant]
     Active Substance: HYDRALAZINE HYDROCHLORIDE
     Indication: HYPERTENSION
     Dosage: UNK, AS NEEDED (3-4 TIMES A DAY AS NEEDED)
  6. LIPITOR [Concomitant]
     Active Substance: ATORVASTATIN CALCIUM
     Dosage: UNK
  7. AMLODIPINE [Concomitant]
     Active Substance: AMLODIPINE BESYLATE
     Indication: HYPERTENSION
     Dosage: UNK
  8. TENORMIN [Concomitant]
     Active Substance: ATENOLOL
     Dosage: UNK
  9. METAMUCIL [Concomitant]
     Active Substance: PLANTAGO SEED
     Dosage: UNK
  10. SUTENT [Suspect]
     Active Substance: SUNITINIB MALATE
     Indication: METASTATIC RENAL CELL CARCINOMA
     Dosage: 50 MG, CYCLIC (2 WEEKS ON/1 WEEK OFF)/BEDTIME
     Dates: start: 20161201
  11. VALSARTAN. [Concomitant]
     Active Substance: VALSARTAN
     Dosage: UNK
  12. ULORIC [Concomitant]
     Active Substance: FEBUXOSTAT
     Dosage: UNK
  13. LEVOTHYROXINE. [Concomitant]
     Active Substance: LEVOTHYROXINE
     Dosage: UNK
  14. HYDRALAZINE [Concomitant]
     Active Substance: HYDRALAZINE HYDROCHLORIDE
     Dosage: 1 DF, DAILY [TAKES ONLY 1 HYDRALAZINE PER DAY NOW]

REACTIONS (17)
  - Dysgeusia [Unknown]
  - Weight decreased [Not Recovered/Not Resolved]
  - Glossodynia [Unknown]
  - Blood triglycerides increased [Unknown]
  - Anxiety [Unknown]
  - Lethargy [Unknown]
  - Faeces soft [Unknown]
  - Pain in extremity [Unknown]
  - Oedema peripheral [Unknown]
  - Headache [Recovered/Resolved]
  - Abdominal discomfort [Unknown]
  - Diarrhoea [Recovered/Resolved]
  - Flatulence [Unknown]
  - Blood pressure increased [Recovered/Resolved]
  - Sleep disorder [Unknown]
  - Asthenia [Unknown]
  - Blood creatinine increased [Unknown]
